FAERS Safety Report 6598152-0 (Version None)
Quarter: 2010Q1

REPORT INFORMATION
  Report Type: 
  Country: None (occurrence: None)
  Receive Date: 20100224
  Receipt Date: 20050111
  Transmission Date: 20100710
  Serious: No
  Sender: FDA-Public Use
  Company Number: US-ALLERGAN-200500533

PATIENT
  Age: 56 Year
  Sex: Female

DRUGS (5)
  1. BOTOX [Suspect]
     Indication: TORTICOLLIS
     Route: 030
  2. TOPROL-XL [Concomitant]
     Indication: HYPERTENSION
     Dosage: 50MG, QAM
     Route: 048
  3. ESTRACE [Concomitant]
     Indication: DRUG USE FOR UNKNOWN INDICATION
     Dosage: DOSE QUANTITY: 2, DOSE UNIT: MG
  4. PROGESTERONE [Concomitant]
     Indication: DRUG USE FOR UNKNOWN INDICATION
  5. CLONOPIN [Concomitant]
     Indication: TORTICOLLIS
     Dosage: DOSE QUANTITY: .5, DOSE UNIT: MG

REACTIONS (4)
  - DRY EYE [None]
  - DRY MOUTH [None]
  - DYSPHONIA [None]
  - SINUSITIS [None]
